FAERS Safety Report 15693921 (Version 6)
Quarter: 2019Q1

REPORT INFORMATION
  Report Type: Report from Study
  Country: CA (occurrence: CA)
  Receive Date: 20181206
  Receipt Date: 20190211
  Transmission Date: 20190417
  Serious: Yes (Hospitalization, Other)
  Sender: FDA-Public Use
  Company Number: CA-GLAXOSMITHKLINE-CA2018GSK205752

PATIENT
  Age: 58 Year
  Sex: Female

DRUGS (3)
  1. MEPOLIZUMAB [Suspect]
     Active Substance: MEPOLIZUMAB
     Dosage: 100 MG, Z (MONTHLY)
     Route: 042
  2. MEPOLIZUMAB [Suspect]
     Active Substance: MEPOLIZUMAB
     Indication: ASTHMA
     Dosage: 100 MG, Z (MONTHLY)
     Route: 042
  3. PREDNISONE. [Suspect]
     Active Substance: PREDNISONE
     Indication: PRODUCT USED FOR UNKNOWN INDICATION
     Dosage: 50 MG, UNK
     Dates: end: 20181107

REACTIONS (10)
  - Pneumonia bacterial [Unknown]
  - Dyspnoea [Unknown]
  - Chronic sinusitis [Unknown]
  - Pneumonia [Unknown]
  - Lung infection [Unknown]
  - Poor quality sleep [Unknown]
  - Cough [Unknown]
  - Bronchiectasis [Unknown]
  - Lower respiratory tract infection bacterial [Unknown]
  - Fatigue [Unknown]

NARRATIVE: CASE EVENT DATE: 20181107
